FAERS Safety Report 8513131-1 (Version None)
Quarter: 2012Q3

REPORT INFORMATION
  Report Type: 
  Country: None (occurrence: None)
  Receive Date: 20120716
  Receipt Date: 20120705
  Transmission Date: 20120928
  Serious: Yes (Other)
  Sender: FDA-Public Use
  Company Number: US-ELI_LILLY_AND_COMPANY-US201201000215

PATIENT
  Sex: Male

DRUGS (3)
  1. FORTEO [Suspect]
     Indication: OSTEOPOROSIS
     Dosage: 20 UG, QD
     Dates: start: 20110901
  2. FORTEO [Suspect]
     Dosage: 20 UG, QD
  3. FORTEO [Suspect]
     Dosage: 20 UG, QD

REACTIONS (8)
  - HEAD INJURY [None]
  - SCRATCH [None]
  - DEVICE DISLOCATION [None]
  - JOINT DISLOCATION [None]
  - FALL [None]
  - CONTUSION [None]
  - PAIN IN EXTREMITY [None]
  - PAIN [None]
